FAERS Safety Report 8036446-2 (Version None)
Quarter: 2012Q1

REPORT INFORMATION
  Report Type: 
  Country: None (occurrence: None)
  Receive Date: 20120111
  Receipt Date: 20120106
  Transmission Date: 20120608
  Serious: Yes (Hospitalization)
  Sender: FDA-Public Use
  Company Number: JP-ASTRAZENECA-2011SE78484

PATIENT
  Age: 22124 Day
  Sex: Male

DRUGS (12)
  1. CRESTOR [Concomitant]
     Indication: HYPERCHOLESTEROLAEMIA
     Route: 048
     Dates: start: 20110705, end: 20110816
  2. CRESTOR [Concomitant]
     Route: 048
     Dates: start: 20110817
  3. PL [Concomitant]
     Indication: NASOPHARYNGITIS
     Route: 048
     Dates: start: 20111221
  4. FLIVAS [Concomitant]
     Indication: DYSURIA
     Route: 048
     Dates: start: 20110921
  5. GLUCOBAY [Concomitant]
     Indication: GLUCOSE TOLERANCE IMPAIRED
     Route: 048
     Dates: start: 20110628
  6. PLAVIX [Suspect]
     Indication: ACUTE CORONARY SYNDROME
     Route: 048
     Dates: start: 20110620, end: 20111227
  7. PLACEBO [Suspect]
     Indication: ACUTE CORONARY SYNDROME
     Dosage: DAILY
     Route: 048
     Dates: start: 20110620, end: 20111227
  8. ASPIRIN [Suspect]
     Indication: ACUTE CORONARY SYNDROME
     Route: 048
     Dates: start: 20110621
  9. ENALAPRIL MALEATE [Concomitant]
     Indication: ISCHAEMIC HEART DISEASE PROPHYLAXIS
     Route: 048
     Dates: start: 20110626
  10. DUTASTERIDE [Concomitant]
     Indication: DYSURIA
     Route: 048
     Dates: start: 20111019
  11. EPADEL S 900 [Concomitant]
     Indication: ANTIPLATELET THERAPY
     Route: 048
     Dates: start: 20110628
  12. RABEPRAZOLE SODIUM [Concomitant]
     Indication: PROPHYLAXIS AGAINST GASTROINTESTINAL ULCER
     Route: 048
     Dates: start: 20110621

REACTIONS (1)
  - CORONARY ARTERY RESTENOSIS [None]
